FAERS Safety Report 24437853 (Version 3)
Quarter: 2024Q4

REPORT INFORMATION
  Report Type: Spontaneous
  Country: BR (occurrence: BR)
  Receive Date: 20241015
  Receipt Date: 20241028
  Transmission Date: 20250115
  Serious: Yes (Death, Hospitalization)
  Sender: ELI LILLY AND COMPANY
  Company Number: BR-ELI_LILLY_AND_COMPANY-BR202407000675

PATIENT
  Age: 74 Year
  Sex: Male

DRUGS (1)
  1. JAYPIRCA [Suspect]
     Active Substance: PIRTOBRUTINIB
     Indication: Richter^s syndrome
     Dosage: 100 MG, BID
     Route: 065
     Dates: start: 20240605

REACTIONS (6)
  - Malignant neoplasm progression [Fatal]
  - Leukocytosis [Not Recovered/Not Resolved]
  - Febrile neutropenia [Recovered/Resolved]
  - Asthenia [Unknown]
  - Depressed level of consciousness [Unknown]
  - Off label use [Unknown]

NARRATIVE: CASE EVENT DATE: 20240701
